FAERS Safety Report 7428984-8 (Version None)
Quarter: 2011Q2

REPORT INFORMATION
  Report Type: 
  Country: None (occurrence: None)
  Receive Date: 20110418
  Receipt Date: 20110418
  Transmission Date: 20111010
  Serious: Yes (Hospitalization)
  Sender: FDA-Public Use
  Company Number: None

PATIENT
  Sex: Female
  Weight: 22.4 kg

DRUGS (8)
  1. VINCRISTINE SULFATE [Suspect]
     Dosage: 4.4 MG
  2. PEG-L ASPARAGINASE (K-H) [Suspect]
     Dosage: 1825 UNIT
  3. CYTARABINE [Suspect]
     Dosage: 230 MG
  4. METHOTREXATE [Suspect]
     Dosage: 36 MG
  5. DOXORUBICIN HCL [Suspect]
     Dosage: 54 MG
  6. DEXAMETHASONE [Suspect]
     Dosage: 70 MG
  7. THIOGUANINE [Suspect]
     Dosage: 420 MG
  8. CYCLOPHOSPHAMIDE [Suspect]
     Dosage: 730 MG

REACTIONS (10)
  - ASCITES [None]
  - CAECITIS [None]
  - ABDOMINAL DISTENSION [None]
  - CONTINUOUS HAEMODIAFILTRATION [None]
  - PLEURAL EFFUSION [None]
  - NEUTROPENIA [None]
  - PYREXIA [None]
  - ABDOMINAL PAIN [None]
  - VOMITING [None]
  - VENOOCCLUSIVE LIVER DISEASE [None]
